FAERS Safety Report 22151719 (Version 2)
Quarter: 2023Q2

REPORT INFORMATION
  Report Type: Spontaneous
  Country: US (occurrence: US)
  Receive Date: 20230329
  Receipt Date: 20230411
  Transmission Date: 20230722
  Serious: No
  Sender: FDA-Public Use
  Company Number: US-SA-SAC20230328000650

PATIENT
  Sex: Female

DRUGS (1)
  1. DUPIXENT [Suspect]
     Active Substance: DUPILUMAB
     Indication: Asthma
     Dosage: 600 MG , 1X
     Route: 058
     Dates: start: 20230310, end: 20230310

REACTIONS (2)
  - Dyspnoea [Unknown]
  - Respiration abnormal [Recovered/Resolved]
